FAERS Safety Report 19929426 (Version 2)
Quarter: 2021Q4

REPORT INFORMATION
  Report Type: Spontaneous
  Country: CN (occurrence: CN)
  Receive Date: 20211007
  Receipt Date: 20211013
  Transmission Date: 20220303
  Serious: Yes (Other)
  Sender: FDA-Public Use
  Company Number: CN-MLMSERVICE-20210922-3118821-1

PATIENT
  Age: 23 Year
  Sex: Male

DRUGS (6)
  1. METHOTREXATE SODIUM [Suspect]
     Active Substance: METHOTREXATE SODIUM
     Indication: Pyoderma gangrenosum
     Dosage: 12.5 MG, WEEKLY
  2. METHOTREXATE SODIUM [Suspect]
     Active Substance: METHOTREXATE SODIUM
     Indication: Immunosuppressant drug therapy
  3. PREDNISONE [Suspect]
     Active Substance: PREDNISONE
     Indication: Pyoderma gangrenosum
     Dosage: 60 MG, 1X/DAY(FREQ:24 H;)
  4. CYCLOSPORINE [Suspect]
     Active Substance: CYCLOSPORINE
     Indication: Pyoderma gangrenosum
     Dosage: UNK
  5. THALIDOMIDE [Suspect]
     Active Substance: THALIDOMIDE
     Indication: Pyoderma gangrenosum
     Dosage: FREQ:24 H;PER NIGHT(FREQ:24 H;PER NIGHT)
  6. IMMUNE GLOBULIN NOS [Concomitant]
     Active Substance: IMMUNE GLOBULIN NOS
     Indication: Immune system disorder
     Dosage: FREQ:24 H;20 G PER DAY ONCE FOR 3 DAYS EVERY 3 MONTHS
     Route: 042

REACTIONS (1)
  - Liver function test [Recovering/Resolving]
